FAERS Safety Report 8122030-9 (Version None)
Quarter: 2012Q1

REPORT INFORMATION
  Report Type: 
  Country: None (occurrence: None)
  Receive Date: 20120208
  Receipt Date: 20120203
  Transmission Date: 20120608
  Serious: Yes (Hospitalization, Other)
  Sender: FDA-Public Use
  Company Number: US-CELGENEUS-163-21880-11100030

PATIENT
  Sex: Male

DRUGS (12)
  1. REVLIMID [Suspect]
     Indication: MULTIPLE MYELOMA
     Dosage: 25 MILLIGRAM
     Route: 048
     Dates: start: 20101116
  2. REVLIMID [Suspect]
     Dosage: 10 MILLIGRAM
     Route: 048
     Dates: start: 20110801
  3. VITAMIN D [Concomitant]
     Route: 065
  4. ASPIRIN [Concomitant]
     Indication: THROMBOSIS PROPHYLAXIS
     Dosage: 325 MILLIGRAM
     Route: 065
  5. ZOMETA [Concomitant]
     Indication: MULTIPLE MYELOMA
     Route: 041
     Dates: start: 20101214, end: 20111205
  6. SYMBOLTA [Concomitant]
     Route: 065
  7. BENADRYL [Concomitant]
     Indication: PROPHYLAXIS
     Route: 065
  8. ALLOPURINOL [Concomitant]
     Indication: GOUT
     Route: 065
  9. FLOMAX [Concomitant]
     Route: 065
  10. VELCADE [Suspect]
     Indication: MULTIPLE MYELOMA
     Route: 041
     Dates: start: 20101116, end: 20110104
  11. DEXAMETHASONE [Concomitant]
     Indication: MULTIPLE MYELOMA
     Dosage: 40 MILLIGRAM
     Route: 048
     Dates: start: 20101116, end: 20110104
  12. OXYCODONE HCL [Concomitant]
     Indication: BACK PAIN
     Route: 065

REACTIONS (5)
  - AUTONOMIC NEUROPATHY [None]
  - SKIN EXFOLIATION [None]
  - ABDOMINAL PAIN UPPER [None]
  - OEDEMA PERIPHERAL [None]
  - SPINAL COMPRESSION FRACTURE [None]
